FAERS Safety Report 13674012 (Version 2)
Quarter: 2017Q3

REPORT INFORMATION
  Report Type: Spontaneous
  Country: US (occurrence: US)
  Receive Date: 20170621
  Receipt Date: 20170830
  Transmission Date: 20171127
  Serious: Yes (Other)
  Sender: FDA-Public Use
  Company Number: US-LPDUSPRD-20170809

PATIENT
  Age: 16 Year
  Sex: Male

DRUGS (5)
  1. ETOPOSIDE. [Suspect]
     Active Substance: ETOPOSIDE
  2. THIOGUANINE [Suspect]
     Active Substance: THIOGUANINE
  3. DAUNORUBICIN [Suspect]
     Active Substance: DAUNORUBICIN
  4. CYTARABINE. [Suspect]
     Active Substance: CYTARABINE
  5. DEXAMETHASONE SODIUM PHOSPHATE INJECTION, USP (4905-25) [Suspect]
     Active Substance: DEXAMETHASONE SODIUM PHOSPHATE
     Dosage: UNKNOWN
     Route: 065

REACTIONS (3)
  - Staphylococcal infection [Unknown]
  - Colitis [Unknown]
  - Cellulitis [Unknown]
